FAERS Safety Report 9691963 (Version 3)
Quarter: 2016Q2

REPORT INFORMATION
  Report Type: Report from Study
  Country: US (occurrence: US)
  Receive Date: 20131118
  Receipt Date: 20160523
  Transmission Date: 20160815
  Serious: Yes (Other)
  Sender: FDA-Public Use
  Company Number: US-ROCHE-1304670

PATIENT
  Sex: Female

DRUGS (2)
  1. XOLAIR [Suspect]
     Active Substance: OMALIZUMAB
     Indication: ASTHMA
     Route: 058
  2. XOLAIR [Suspect]
     Active Substance: OMALIZUMAB
     Indication: SEASONAL ALLERGY

REACTIONS (11)
  - Urticaria [Unknown]
  - Anaphylactic reaction [Unknown]
  - Blindness [Unknown]
  - Headache [Unknown]
  - Allergy to venom [Unknown]
  - Nasal mucosal disorder [Unknown]
  - Nasal oedema [Unknown]
  - Asthma [Unknown]
  - Swelling [Unknown]
  - Asthma exercise induced [Unknown]
  - Dyspnoea [Unknown]
